FAERS Safety Report 8407011-X (Version None)
Quarter: 2012Q2

REPORT INFORMATION
  Report Type: 
  Country: None (occurrence: None)
  Receive Date: 20120604
  Receipt Date: 20120531
  Transmission Date: 20120825
  Serious: Yes (Hospitalization)
  Sender: FDA-Public Use
  Company Number: IE-ROCHE-1049217

PATIENT
  Sex: Male

DRUGS (11)
  1. XOLAIR [Suspect]
     Dates: start: 20120510
  2. SINGULAIR [Concomitant]
  3. MICARDIS [Concomitant]
  4. DELTACORTRIL [Concomitant]
  5. PHYLLOCONTIN [Concomitant]
  6. VITAMIN B-12 [Concomitant]
  7. FLUTICASONE PROPIONATE/SALMETEROL [Concomitant]
  8. PULMICORT [Concomitant]
  9. XOLAIR [Suspect]
     Indication: ASTHMA
     Route: 065
     Dates: start: 20120203
  10. COMBIVENT [Concomitant]
  11. SPIRIVA [Concomitant]

REACTIONS (1)
  - ASTHMA [None]
